FAERS Safety Report 11901033 (Version 4)
Quarter: 2016Q1

REPORT INFORMATION
  Report Type: Report from Study
  Country: US (occurrence: US)
  Receive Date: 20160108
  Receipt Date: 20160111
  Transmission Date: 20160526
  Serious: No
  Sender: FDA-Public Use
  Company Number: US-ABBVIE-15P-163-1475565-00

PATIENT
  Age: 66 Year
  Sex: Female

DRUGS (4)
  1. MODERIBA [Concomitant]
     Active Substance: RIBAVIRIN
     Indication: HEPATITIS C
  2. TRAMADOL. [Concomitant]
     Active Substance: TRAMADOL
     Indication: PRODUCT USED FOR UNKNOWN INDICATION
  3. VIEKIRA PAK [Suspect]
     Active Substance: DASABUVIR\OMBITASVIR\PARITAPREVIR\RITONAVIR
     Indication: HEPATITIS C
     Dosage: 2 PINK, 1 BEIGE AM; 1 BEIGE PM
     Route: 048
     Dates: start: 20150901
  4. ATENOLOL. [Concomitant]
     Active Substance: ATENOLOL
     Indication: PRODUCT USED FOR UNKNOWN INDICATION

REACTIONS (15)
  - Gastrointestinal disorder [Unknown]
  - Nausea [Unknown]
  - Blood potassium decreased [Unknown]
  - Sleep disorder [Unknown]
  - Dyspepsia [Recovering/Resolving]
  - Fatigue [Recovering/Resolving]
  - Anaemia [Unknown]
  - Cough [Unknown]
  - Vertigo [Unknown]
  - Headache [Unknown]
  - Dyspnoea [Recovering/Resolving]
  - Pruritus [Unknown]
  - Throat irritation [Unknown]
  - Laboratory test abnormal [Unknown]
  - Decreased appetite [Unknown]

NARRATIVE: CASE EVENT DATE: 20150908
